FAERS Safety Report 20389540 (Version 2)
Quarter: 2022Q1

REPORT INFORMATION
  Report Type: Other
  Country: ES (occurrence: None)
  Receive Date: 20220128
  Receipt Date: 20220202
  Transmission Date: 20220423
  Serious: Yes (Hospitalization)
  Sender: FDA-Public Use
  Company Number: ES-ROCHE-3004779

PATIENT
  Age: 58 Year
  Sex: Male
  Weight: 98.5 kg

DRUGS (2)
  1. ATEZOLIZUMAB [Suspect]
     Active Substance: ATEZOLIZUMAB
     Indication: Product used for unknown indication
     Route: 041
     Dates: start: 20180911
  2. SIMLUKAFUSP ALFA [Suspect]
     Active Substance: SIMLUKAFUSP ALFA
     Indication: Product used for unknown indication
     Route: 042
     Dates: start: 20180911

REACTIONS (1)
  - Biliary obstruction [Recovered/Resolved]

NARRATIVE: CASE EVENT DATE: 20220117
